FAERS Safety Report 12535467 (Version 1)
Quarter: 2016Q3

REPORT INFORMATION
  Report Type: Report from Study
  Country: DE (occurrence: DE)
  Receive Date: 20160707
  Receipt Date: 20160707
  Transmission Date: 20161109
  Serious: Yes (Hospitalization)
  Sender: FDA-Public Use
  Company Number: PHHY2016DE091621

PATIENT

DRUGS (13)
  1. L-THYROXINE//LEVOTHYROXINE [Concomitant]
     Dosage: 88 UG, QD
     Route: 065
     Dates: start: 20140918
  2. HYLO [Concomitant]
     Indication: DRY EYE
     Dosage: UNK
     Route: 065
     Dates: start: 20150508, end: 20150831
  3. PANTOPRAZOL [Concomitant]
     Active Substance: PANTOPRAZOLE SODIUM
     Indication: NAUSEA
     Dosage: 20 MG, QD
     Route: 065
     Dates: start: 20140918
  4. NOVALGIN [Concomitant]
     Active Substance: METAMIZOLE SODIUM
     Indication: ARTHRALGIA
     Dosage: UNK UNK, PRN
     Route: 065
     Dates: start: 20150508
  5. CEFUROXIME. [Concomitant]
     Active Substance: CEFUROXIME
     Indication: BRONCHITIS
     Dosage: UNK
     Route: 065
     Dates: start: 201604, end: 20160418
  6. CEFUROXIME. [Concomitant]
     Active Substance: CEFUROXIME
     Indication: INFLUENZA LIKE ILLNESS
     Dosage: 500 MG, QD
     Route: 065
     Dates: start: 20160118, end: 20160127
  7. L-THYROXINE//LEVOTHYROXINE [Concomitant]
     Indication: HYPOTHYROIDISM
     Dosage: 100 UG, QD
     Route: 065
     Dates: end: 20140917
  8. LEVOFLOXACIN. [Concomitant]
     Active Substance: LEVOFLOXACIN
     Indication: BRONCHITIS
     Route: 065
     Dates: start: 201604, end: 20160423
  9. CEFPODOXIME [Concomitant]
     Active Substance: CEFPODOXIME
     Indication: BRONCHITIS
     Dosage: 200 MG, QD
     Route: 065
     Dates: start: 20160424
  10. MAGNESIUM [Concomitant]
     Active Substance: MAGNESIUM
     Indication: ARTHRALGIA
     Route: 065
     Dates: start: 20150208
  11. TOXI-LOGES [Concomitant]
     Indication: INFECTION
     Route: 065
     Dates: start: 20160423
  12. TASIGNA [Suspect]
     Active Substance: NILOTINIB
     Indication: CHRONIC MYELOID LEUKAEMIA
     Route: 065
     Dates: start: 20140725
  13. IBEROGAST [Concomitant]
     Active Substance: HERBALS
     Indication: NAUSEA
     Dosage: 20 DRP, PRN
     Route: 065
     Dates: start: 20140918

REACTIONS (1)
  - Bronchitis [Recovered/Resolved]

NARRATIVE: CASE EVENT DATE: 20160418
